FAERS Safety Report 8721052 (Version 2)
Quarter: 2012Q4

REPORT INFORMATION
  Report Type: 
  Country: US (occurrence: US)
  Receive Date: 20120813
  Receipt Date: 20120905
  Transmission Date: 20130627
  Serious: No
  Sender: FDA-Public Use
  Company Number: US-ASTRAZENECA-2011SE21443

PATIENT
  Age: 45 Year
  Sex: Female

DRUGS (4)
  1. ATACAND [Suspect]
     Route: 048
  2. NEXIUM [Suspect]
     Route: 048
  3. LISINOPRIL [Suspect]
     Route: 048
  4. PRILOSEC [Suspect]
     Route: 048

REACTIONS (12)
  - Blood pressure increased [Unknown]
  - Panic attack [Unknown]
  - Gastrooesophageal reflux disease [Unknown]
  - Chest pain [Unknown]
  - Anxiety [Unknown]
  - Malaise [Unknown]
  - Cough [Unknown]
  - Migraine [Unknown]
  - Blood pressure abnormal [Unknown]
  - Muscle tightness [Unknown]
  - Stress [Unknown]
  - Drug dose omission [Unknown]
